FAERS Safety Report 9012442 (Version 1)
Quarter: 2013Q1

REPORT INFORMATION
  Report Type: Spontaneous
  Country: US (occurrence: US)
  Receive Date: 20130114
  Receipt Date: 20130114
  Transmission Date: 20140127
  Serious: No
  Sender: FDA-Public Use
  Company Number: US-TEVA-315181USA

PATIENT
  Sex: Male

DRUGS (1)
  1. DORZOLAMIDE [Suspect]

REACTIONS (1)
  - Intraocular pressure increased [Unknown]
